FAERS Safety Report 19740487 (Version 1)
Quarter: 2021Q3

REPORT INFORMATION
  Report Type: Report from Study
  Country: IE (occurrence: IE)
  Receive Date: 20210824
  Receipt Date: 20210824
  Transmission Date: 20211014
  Serious: Yes (Other)
  Sender: FDA-Public Use
  Company Number: IE-ACCORD-235940

PATIENT
  Age: 62 Year
  Sex: Female

DRUGS (9)
  1. GENTAMICIN. [Suspect]
     Active Substance: GENTAMICIN
     Indication: PROPHYLAXIS AGAINST TRANSPLANT REJECTION
  2. TACROLIMUS. [Suspect]
     Active Substance: TACROLIMUS
     Indication: PROPHYLAXIS AGAINST TRANSPLANT REJECTION
  3. MYCOPHENOLIC ACID. [Suspect]
     Active Substance: MYCOPHENOLIC ACID
     Indication: PROPHYLAXIS AGAINST TRANSPLANT REJECTION
  4. AMOXICILLIN/CLAVULANIC ACID [Suspect]
     Active Substance: AMOXICILLIN\CLAVULANIC ACID
     Indication: PROPHYLAXIS AGAINST TRANSPLANT REJECTION
  5. FUROSEMIDE. [Suspect]
     Active Substance: FUROSEMIDE
     Indication: PROPHYLAXIS AGAINST TRANSPLANT REJECTION
  6. RANITIDINE. [Suspect]
     Active Substance: RANITIDINE
     Indication: PROPHYLAXIS AGAINST TRANSPLANT REJECTION
  7. PREDNISOLONE. [Suspect]
     Active Substance: PREDNISOLONE
     Indication: PROPHYLAXIS AGAINST TRANSPLANT REJECTION
  8. VANCOMYCIN [Suspect]
     Active Substance: VANCOMYCIN
     Indication: PROPHYLAXIS AGAINST TRANSPLANT REJECTION
  9. SULFAMETHOXAZOLE/TRIMETHOPRIM [Suspect]
     Active Substance: SULFAMETHOXAZOLE\TRIMETHOPRIM
     Indication: ANTIFUNGAL PROPHYLAXIS

REACTIONS (5)
  - Lymphocytic infiltration [Recovered/Resolved]
  - Transplant dysfunction [Recovered/Resolved]
  - Off label use [Unknown]
  - Tubulointerstitial nephritis [Recovered/Resolved]
  - Blood creatinine abnormal [Recovered/Resolved]
